FAERS Safety Report 13912834 (Version 1)
Quarter: 2017Q3

REPORT INFORMATION
  Report Type: Spontaneous
  Country: GB (occurrence: GB)
  Receive Date: 20170828
  Receipt Date: 20170828
  Transmission Date: 20171127
  Serious: Yes (Other)
  Sender: FDA-Public Use
  Company Number: GB-ELI_LILLY_AND_COMPANY-GB201611004479

PATIENT
  Age: 71 Year
  Sex: Female

DRUGS (2)
  1. FORSTEO [Suspect]
     Active Substance: TERIPARATIDE
     Indication: PRODUCT USED FOR UNKNOWN INDICATION
     Dosage: UNK, UNKNOWN
     Route: 065
     Dates: start: 20160811
  2. SERTRALINE [Concomitant]
     Active Substance: SERTRALINE HYDROCHLORIDE
     Indication: DEPRESSION

REACTIONS (4)
  - Palpitations [Unknown]
  - Stress [Unknown]
  - Heart rate decreased [Unknown]
  - Dizziness [Unknown]

NARRATIVE: CASE EVENT DATE: 201611
